FAERS Safety Report 10545656 (Version 2)
Quarter: 2014Q4

REPORT INFORMATION
  Report Type: Spontaneous
  Country: US (occurrence: US)
  Receive Date: 20141027
  Receipt Date: 20141027
  Transmission Date: 20150529
  Serious: Yes (Other)
  Sender: FDA-Public Use
  Company Number: US-ASTELLAS-2014US011377

PATIENT

DRUGS (1)
  1. LEXISCAN [Suspect]
     Active Substance: REGADENOSON
     Indication: PRODUCT USED FOR UNKNOWN INDICATION
     Dosage: UNK, TOTAL DOSE
     Route: 042

REACTIONS (7)
  - Dyspnoea [Unknown]
  - Paraesthesia [Unknown]
  - Muscle twitching [Unknown]
  - Blood pressure increased [Unknown]
  - Heart rate increased [Unknown]
  - Pain in extremity [Unknown]
  - Tremor [Unknown]
